FAERS Safety Report 11135300 (Version 1)
Quarter: 2015Q2

REPORT INFORMATION
  Report Type: Report from Study
  Country: US (occurrence: US)
  Receive Date: 20150525
  Receipt Date: 20150525
  Transmission Date: 20150821
  Serious: Yes (Hospitalization)
  Sender: FDA-Public Use
  Company Number: PHHO2015US009134

PATIENT
  Age: 60 Year
  Sex: Female
  Weight: 66 kg

DRUGS (3)
  1. RADIATION THERAPY [Suspect]
     Active Substance: RADIATION THERAPY
     Indication: GLIOBLASTOMA
     Dosage: 6000 CGY
     Route: 065
     Dates: start: 20130916
  2. AFINITOR [Suspect]
     Active Substance: EVEROLIMUS
     Indication: GLIOBLASTOMA
     Dosage: 10 MG, QD
     Route: 048
     Dates: start: 20130916
  3. COMPARATOR TEMOZOLOMIDE [Suspect]
     Active Substance: TEMOZOLOMIDE
     Indication: GLIOBLASTOMA
     Dosage: 135 MG, QD
     Route: 048
     Dates: start: 20130916

REACTIONS (6)
  - Fatigue [Recovered/Resolved]
  - Anaemia [Recovered/Resolved]
  - Seizure [Recovered/Resolved]
  - Embolism [Recovered/Resolved]
  - Muscular weakness [Recovered/Resolved]
  - Hemiparesis [Recovered/Resolved]

NARRATIVE: CASE EVENT DATE: 20131017
